FAERS Safety Report 15478042 (Version 1)
Quarter: 2018Q4

REPORT INFORMATION
  Report Type: Spontaneous
  Country: GB (occurrence: GB)
  Receive Date: 20181009
  Receipt Date: 20181009
  Transmission Date: 20190205
  Serious: Yes (Other)
  Sender: FDA-Public Use
  Company Number: PHHY2018GB117962

PATIENT
  Age: 54 Year
  Sex: Female
  Weight: 53 kg

DRUGS (11)
  1. RANITIDINE. [Concomitant]
     Active Substance: RANITIDINE
     Indication: PRODUCT USED FOR UNKNOWN INDICATION
     Dosage: 2 ?G/L, QD (216 UG/LITRE)
     Route: 065
     Dates: start: 20180601, end: 20180829
  2. FOLIC ACID. [Concomitant]
     Active Substance: FOLIC ACID
     Indication: PRODUCT USED FOR UNKNOWN INDICATION
     Dosage: 1 ?G/L, QD (AS DIRECTED) (33.99405 UG/LITRE)
     Route: 065
     Dates: start: 20180122
  3. CALCIUM CARBONATE. [Concomitant]
     Active Substance: CALCIUM CARBONATE
     Indication: PRODUCT USED FOR UNKNOWN INDICATION
     Dosage: 2 ?G/L, QD (BUT NOT ON DAY THAT TAKES) (796 UG/LITRE)
     Route: 065
     Dates: start: 20170815
  4. ALENDRONIC ACID [Concomitant]
     Active Substance: ALENDRONIC ACID
     Indication: PRODUCT USED FOR UNKNOWN INDICATION
     Dosage: 1 ?G/L, QD (57 UG/LITRE)
     Route: 065
     Dates: start: 20170814
  5. CLARITHROMYCIN. [Concomitant]
     Active Substance: CLARITHROMYCIN
     Indication: PRODUCT USED FOR UNKNOWN INDICATION
     Dosage: 2 ?G/L, QD (166 UG/LITRE)
     Route: 065
     Dates: start: 20180626, end: 20180701
  6. TYPHIM VI [Concomitant]
     Active Substance: SALMONELLA TYPHI TY2 VI POLYSACCHARIDE ANTIGEN
     Indication: PRODUCT USED FOR UNKNOWN INDICATION
     Dosage: UNK, QD
     Route: 065
     Dates: start: 20180727, end: 20180727
  7. METHOTREXATE. [Concomitant]
     Active Substance: METHOTREXATE
     Indication: PRODUCT USED FOR UNKNOWN INDICATION
     Dosage: 20 MG, QW (8 TABLETS) (679.881 MG)
     Route: 065
     Dates: start: 20180122, end: 20180724
  8. MYCOPHENOLATE MOFETIL. [Suspect]
     Active Substance: MYCOPHENOLATE MOFETIL
     Indication: PRODUCT USED FOR UNKNOWN INDICATION
     Dosage: 250 MG, UNK
     Route: 065
  9. AMITRIPTYLINE HYDROCHLORIDE. [Concomitant]
     Active Substance: AMITRIPTYLINE HYDROCHLORIDE
     Indication: PRODUCT USED FOR UNKNOWN INDICATION
     Dosage: (TAKE 1-2 AT NIGHT AS DIRECTED BY CONSULTANT)
     Route: 065
     Dates: start: 20170905, end: 20180829
  10. FEXOFENADINE [Concomitant]
     Active Substance: FEXOFENADINE\FEXOFENADINE HYDROCHLORIDE
     Indication: PRODUCT USED FOR UNKNOWN INDICATION
     Dosage: 1 ?G/L, QD (886 UG/LITRE)
     Dates: start: 20160414
  11. MAROL [Concomitant]
     Active Substance: TRAMADOL HYDROCHLORIDE
     Indication: PRODUCT USED FOR UNKNOWN INDICATION
     Dosage: 3 ?G/L, QD (692.875 UG/LITRE)
     Route: 065
     Dates: start: 20180129

REACTIONS (3)
  - Pruritus generalised [Recovering/Resolving]
  - Rash maculo-papular [Recovering/Resolving]
  - Swollen tongue [Recovering/Resolving]

NARRATIVE: CASE EVENT DATE: 20180917
